FAERS Safety Report 16216338 (Version 1)
Quarter: 2019Q2

REPORT INFORMATION
  Report Type: Spontaneous
  Country: CA (occurrence: CA)
  Receive Date: 20190419
  Receipt Date: 20190419
  Transmission Date: 20190711
  Serious: Yes (Other)
  Sender: FDA-Public Use
  Company Number: CA-AUROBINDO-AUR-APL-2019-020887

PATIENT

DRUGS (2)
  1. TOPIRAMATE. [Suspect]
     Active Substance: TOPIRAMATE
     Indication: MIGRAINE
     Dosage: UNK
     Route: 065
  2. BOTULINUM TOXIN TYPE A [Concomitant]
     Active Substance: BOTULINUM TOXIN TYPE A
     Indication: MIGRAINE
     Dosage: UNK
     Route: 065

REACTIONS (1)
  - Concussion [Unknown]
